FAERS Safety Report 14512406 (Version 1)
Quarter: 2018Q1

REPORT INFORMATION
  Report Type: Spontaneous
  Country: US (occurrence: US)
  Receive Date: 20180209
  Receipt Date: 20180209
  Transmission Date: 20180509
  Serious: No
  Sender: FDA-Public Use
  Company Number: US-ALLERGAN-1718045US

PATIENT
  Age: 71 Year
  Sex: Male

DRUGS (1)
  1. RESTASIS [Suspect]
     Active Substance: CYCLOSPORINE
     Indication: DRY EYE
     Dosage: UNK, TID
     Route: 047

REACTIONS (3)
  - Drug ineffective [Unknown]
  - Visual impairment [Not Recovered/Not Resolved]
  - Inappropriate schedule of drug administration [Unknown]
